FAERS Safety Report 11898007 (Version 3)
Quarter: 2016Q1

REPORT INFORMATION
  Report Type: Spontaneous
  Country: IT (occurrence: IT)
  Receive Date: 20160108
  Receipt Date: 20160203
  Transmission Date: 20160526
  Serious: Yes (Death)
  Sender: FDA-Public Use
  Company Number: IT-009507513-1601ITA000815

PATIENT
  Age: 54 Year
  Sex: Female

DRUGS (7)
  1. SOVALDI [Suspect]
     Active Substance: SOFOSBUVIR
     Indication: CHRONIC HEPATITIS C
     Dosage: 400 MG, QD
     Route: 048
     Dates: start: 20150401, end: 20150722
  2. CARVEDILOL. [Concomitant]
     Active Substance: CARVEDILOL
     Dosage: 1/2 TABLET IN THE MORNING AND 1/2 TABLET IN THE EVENING
     Route: 048
     Dates: start: 20130726
  3. LUVION (CANRENONE) [Concomitant]
     Active Substance: CANRENONE
     Dosage: 1 TABLET IN THE MORNING
  4. REBETOL [Suspect]
     Active Substance: RIBAVIRIN
     Indication: CHRONIC HEPATITIS C
     Dosage: 1000 MG, QD
     Route: 048
     Dates: start: 20150401, end: 20150722
  5. CALCIUM SANDOZ (CALCIUM GLUCONATE) [Concomitant]
     Active Substance: CALCIUM GLUCONATE
     Dosage: 1 DOSE UNIT DAILY
  6. LEVOPRAID [Concomitant]
     Active Substance: SULPIRIDE
     Dosage: 1 TABLET 30 MINUTES BEFORE MEALS
  7. LASIX [Concomitant]
     Active Substance: FUROSEMIDE
     Dosage: 25 MG, QD
     Route: 042

REACTIONS (1)
  - Oesophageal varices haemorrhage [Fatal]

NARRATIVE: CASE EVENT DATE: 201508
